FAERS Safety Report 24756851 (Version 2)
Quarter: 2025Q1

REPORT INFORMATION
  Report Type: Report from Study
  Country: AT (occurrence: AT)
  Receive Date: 20241220
  Receipt Date: 20250304
  Transmission Date: 20250408
  Serious: Yes (Hospitalization)
  Sender: ROCHE
  Company Number: AT-ROCHE-10000157723

PATIENT
  Sex: Male

DRUGS (1)
  1. OCREVUS [Suspect]
     Active Substance: OCRELIZUMAB
     Indication: Multiple sclerosis
     Dosage: 30 MG/1 ML
     Route: 042
     Dates: start: 20240328, end: 20240328

REACTIONS (3)
  - Urethritis noninfective [Not Recovered/Not Resolved]
  - Inflammation [Unknown]
  - Impaired healing [Unknown]
